FAERS Safety Report 4478453-2 (Version None)
Quarter: 2004Q4

REPORT INFORMATION
  Report Type: 
  Country: None (occurrence: None)
  Receive Date: 20041019
  Receipt Date: 20041014
  Transmission Date: 20050328
  Serious: Yes (Life-Threatening, Hospitalization)
  Sender: FDA-Public Use
  Company Number: PHBS2004JP13698

PATIENT
  Age: 28 Year
  Sex: Female

DRUGS (3)
  1. DIOVAN [Suspect]
     Dosage: 28 TABLET, ONCE/SINGLE
     Route: 048
  2. GLYBURIDE [Suspect]
     Dosage: 96 DF, ONCE/SINGLE
     Route: 048
  3. ROHYPNOL [Suspect]
     Dosage: 100 DF, ONCE/SINGLE
     Route: 048

REACTIONS (6)
  - DEPRESSED LEVEL OF CONSCIOUSNESS [None]
  - DRUG TOXICITY [None]
  - HYPOGLYCAEMIA [None]
  - INTENTIONAL OVERDOSE [None]
  - SUICIDE ATTEMPT [None]
  - TREMOR [None]
